FAERS Safety Report 4415772-X (Version None)
Quarter: 2004Q2

REPORT INFORMATION
  Report Type: 
  Country: None (occurrence: None)
  Receive Date: 20040628
  Receipt Date: 20030625
  Transmission Date: 20050107
  Serious: Yes (Other)
  Sender: FDA-Public Use
  Company Number: 336833

PATIENT
  Age: 66 Year
  Sex: Female

DRUGS (3)
  1. CELLCEPT [Suspect]
     Dosage: 2 GRAM DAILY
  2. PREDNISONE [Concomitant]
  3. NOLVADEX [Concomitant]

REACTIONS (5)
  - FATIGUE [None]
  - LIVER FUNCTION TEST ABNORMAL [None]
  - METAMYELOCYTE COUNT INCREASED [None]
  - NEUTROPHIL COUNT INCREASED [None]
  - WHITE BLOOD CELL COUNT INCREASED [None]
